FAERS Safety Report 23497327 (Version 1)
Quarter: 2024Q1

REPORT INFORMATION
  Report Type: Spontaneous
  Country: US (occurrence: None)
  Receive Date: 20240207
  Receipt Date: 20240207
  Transmission Date: 20240409
  Serious: No
  Sender: FDA-Public Use
  Company Number: US-ROCHE-3298648

PATIENT
  Age: 54 Year
  Sex: Female

DRUGS (22)
  1. XOLAIR [Suspect]
     Active Substance: OMALIZUMAB
     Indication: Asthma
     Route: 058
     Dates: start: 20170523
  2. SUMATRIPTAN [Concomitant]
     Active Substance: SUMATRIPTAN
  3. BENZONATATE [Concomitant]
     Active Substance: BENZONATATE
  4. IRON [Concomitant]
     Active Substance: IRON
  5. NAPROXEN [Concomitant]
     Active Substance: NAPROXEN
  6. ONDANSETRON [Concomitant]
     Active Substance: ONDANSETRON
  7. PROAIR HFA [Concomitant]
     Active Substance: ALBUTEROL SULFATE
  8. SINGULAIR [Concomitant]
     Active Substance: MONTELUKAST SODIUM
  9. TIZANIDINE [Concomitant]
     Active Substance: TIZANIDINE
  10. AMITRIPTYLINE [Concomitant]
     Active Substance: AMITRIPTYLINE
  11. AZITHROMYCIN [Concomitant]
     Active Substance: AZITHROMYCIN
  12. BUPROPION HYDROCHLORIDE [Concomitant]
     Active Substance: BUPROPION HYDROCHLORIDE
  13. DIVALPROEX SODIUM [Concomitant]
     Active Substance: DIVALPROEX SODIUM
  14. DOXYCYCLINE [Concomitant]
     Active Substance: DOXYCYCLINE
  15. EPINEPHRINE [Concomitant]
     Active Substance: EPINEPHRINE
  16. LAMOTRIGINE [Concomitant]
     Active Substance: LAMOTRIGINE
  17. LEVOFLOXACIN [Concomitant]
     Active Substance: LEVOFLOXACIN
  18. LINZESS [Concomitant]
     Active Substance: LINACLOTIDE
  19. MONTELUKAST [Concomitant]
     Active Substance: MONTELUKAST SODIUM
  20. PREDNISONE [Concomitant]
     Active Substance: PREDNISONE
  21. RESTASIS [Concomitant]
     Active Substance: CYCLOSPORINE
  22. SERTRALINE HYDROCHLORIDE [Concomitant]
     Active Substance: SERTRALINE HYDROCHLORIDE

REACTIONS (1)
  - Illness [Not Recovered/Not Resolved]
